FAERS Safety Report 5356244-8 (Version None)
Quarter: 2007Q2

REPORT INFORMATION
  Report Type: 
  Country: None (occurrence: None)
  Receive Date: 20070612
  Receipt Date: 20070522
  Transmission Date: 20071010
  Serious: Yes (Other)
  Sender: FDA-Public Use
  Company Number: FR-PFIZER INC-2007038346

PATIENT
  Sex: Male

DRUGS (5)
  1. CHAMPIX [Suspect]
  2. ANTIINFECTIVES [Interacting]
  3. NEVIRAPINE [Interacting]
     Indication: HIV TEST POSITIVE
  4. EMTRICITABINE [Concomitant]
  5. DIDANOSINE [Concomitant]

REACTIONS (4)
  - DRUG INTERACTION [None]
  - RASH [None]
  - TOXIC SKIN ERUPTION [None]
  - URTICARIA [None]
